FAERS Safety Report 14648326 (Version 4)
Quarter: 2018Q2

REPORT INFORMATION
  Report Type: Report from Study
  Country: None (occurrence: GB)
  Receive Date: 20180316
  Receipt Date: 20180411
  Transmission Date: 20180711
  Serious: Yes (Hospitalization)
  Sender: FDA-Public Use
  Company Number: GB-ABBVIE-18K-167-2286229-00

PATIENT
  Age: 78 Year
  Sex: Female

DRUGS (1)
  1. DUODOPA [Suspect]
     Active Substance: CARBIDOPA\LEVODOPA
     Indication: PARKINSON^S DISEASE
     Dosage: FORM 100ML CASSETTE, DOSE UNIT MILIGRAM
     Route: 050

REACTIONS (5)
  - Device issue [Unknown]
  - Device connection issue [Unknown]
  - Fall [Unknown]
  - Surgery [Unknown]
  - Confusional state [Unknown]

NARRATIVE: CASE EVENT DATE: 20180309
